FAERS Safety Report 22175336 (Version 3)
Quarter: 2023Q4

REPORT INFORMATION
  Report Type: Spontaneous
  Country: US (occurrence: US)
  Receive Date: 20230405
  Receipt Date: 20231130
  Transmission Date: 20240110
  Serious: Yes (Other)
  Sender: FDA-Public Use
  Company Number: US-PFIZER INC-PV202300060286

PATIENT
  Age: 65 Year
  Sex: Female

DRUGS (3)
  1. XELJANZ XR [Suspect]
     Active Substance: TOFACITINIB CITRATE
     Indication: Psoriasis
     Dosage: 11 MG, DAILY
     Route: 048
     Dates: start: 20200924
  2. XELJANZ XR [Suspect]
     Active Substance: TOFACITINIB CITRATE
     Dosage: 11 MG, DAILY
     Route: 048
     Dates: start: 20230620
  3. INSULIN NOS [Concomitant]
     Active Substance: INSULIN NOS
     Dosage: UNK

REACTIONS (9)
  - Fibromyalgia [Unknown]
  - Neck pain [Unknown]
  - Paraesthesia [Unknown]
  - Psoriasis [Recovering/Resolving]
  - Arthralgia [Unknown]
  - Pain [Unknown]
  - Osteoarthritis [Unknown]
  - Pruritus [Unknown]
  - Off label use [Unknown]
